FAERS Safety Report 9379300 (Version 1)
Quarter: 2013Q2

REPORT INFORMATION
  Report Type: Spontaneous
  Country: US (occurrence: None)
  Receive Date: 20130626
  Receipt Date: 20130626
  Transmission Date: 20140414
  Serious: Yes (Hospitalization, Other)
  Sender: FDA-Public Use
  Company Number: AG-2013-1650

PATIENT
  Age: 82 Year
  Sex: Male
  Weight: 74.84 kg

DRUGS (5)
  1. LEUKERAN [Suspect]
     Indication: NON-HODGKIN^S LYMPHOMA
     Route: 048
     Dates: end: 20130429
  2. COZAAR (LOSARTAN [Concomitant]
  3. TRAMADOL (TRAMADOL) [Concomitant]
  4. CRESTOR (ROSUVASTATIN) [Concomitant]
  5. ASPIRIN (ACETYLSALICYLIC ACID) [Concomitant]

REACTIONS (6)
  - Back pain [None]
  - Musculoskeletal chest pain [None]
  - Abdominal pain [None]
  - Joint swelling [None]
  - Arthralgia [None]
  - Local swelling [None]
